FAERS Safety Report 8157495-X (Version None)
Quarter: 2012Q1

REPORT INFORMATION
  Report Type: 
  Country: None (occurrence: None)
  Receive Date: 20120222
  Receipt Date: 20120207
  Transmission Date: 20120608
  Serious: Yes (Hospitalization)
  Sender: FDA-Public Use
  Company Number: CHPA2012US002856

PATIENT
  Sex: Female

DRUGS (2)
  1. NODOZ [Suspect]
     Dosage: UNK, UNK
     Route: 048
  2. EXCEDRIN EXTRA STRENGTH TABLETS [Suspect]
     Indication: HEADACHE
     Dosage: 1 DF, 3 TO 4 TIMES DAILY
     Route: 048
     Dates: start: 19990201

REACTIONS (5)
  - BLOOD PRESSURE INCREASED [None]
  - HYPERSOMNIA [None]
  - VOMITING [None]
  - HEAD DISCOMFORT [None]
  - DIZZINESS [None]
